FAERS Safety Report 13532276 (Version 8)
Quarter: 2018Q1

REPORT INFORMATION
  Report Type: Spontaneous
  Country: US (occurrence: US)
  Receive Date: 20170510
  Receipt Date: 20180111
  Transmission Date: 20180508
  Serious: No
  Sender: FDA-Public Use
  Company Number: PHEH2017US013957

PATIENT
  Age: 36 Year
  Sex: Female
  Weight: 77.98 kg

DRUGS (1)
  1. ZOFRAN [Suspect]
     Active Substance: ONDANSETRON HYDROCHLORIDE
     Indication: VOMITING IN PREGNANCY
     Dosage: 04 MG, PRN
     Route: 048
     Dates: start: 20041015, end: 20050503

REACTIONS (10)
  - Product use in unapproved indication [Unknown]
  - Injury [Unknown]
  - Neuropathy peripheral [Unknown]
  - Anxiety [Unknown]
  - Normal newborn [Unknown]
  - Epistaxis [Unknown]
  - Maternal exposure during pregnancy [Unknown]
  - Abdominal pain [Unknown]
  - Coagulopathy [Unknown]
  - Ovarian cyst [Unknown]

NARRATIVE: CASE EVENT DATE: 20050507
